FAERS Safety Report 8336527-X (Version None)
Quarter: 2012Q2

REPORT INFORMATION
  Report Type: 
  Country: None (occurrence: None)
  Receive Date: 20120504
  Receipt Date: 20120426
  Transmission Date: 20120825
  Serious: Yes (Other)
  Sender: FDA-Public Use
  Company Number: JP-BRISTOL-MYERS SQUIBB COMPANY-16555062

PATIENT
  Age: 50 Year
  Sex: Female

DRUGS (4)
  1. METFORMIN HCL [Suspect]
     Indication: DIABETES MELLITUS
     Dosage: INITIALLY 500MG FROM 26SEP2011 TO 12JAN2012; 750MG 13JAN2012 TO 26MAR2012
     Route: 048
     Dates: start: 20110926, end: 20120326
  2. VILDAGLIPTIN [Concomitant]
     Route: 048
  3. AMARYL [Suspect]
     Dates: end: 20110926
  4. BASEN [Concomitant]
     Route: 048
     Dates: start: 20110926

REACTIONS (1)
  - RENAL IMPAIRMENT [None]
